FAERS Safety Report 11880732 (Version 3)
Quarter: 2016Q1

REPORT INFORMATION
  Report Type: Spontaneous
  Country: JP (occurrence: JP)
  Receive Date: 20151230
  Receipt Date: 20160304
  Transmission Date: 20160526
  Serious: Yes (Death, Other)
  Sender: FDA-Public Use
  Company Number: JP-ROCHE-1685369

PATIENT
  Age: 76 Year
  Sex: Female
  Weight: 37 kg

DRUGS (11)
  1. PERJETA [Concomitant]
     Active Substance: PERTUZUMAB
     Dosage: FORM STRENGTH: 420 MG/14ML
     Route: 041
     Dates: start: 20150109, end: 20150515
  2. HERCEPTIN [Concomitant]
     Active Substance: TRASTUZUMAB
     Indication: BREAST CANCER
     Route: 041
     Dates: start: 20140613
  3. HERCEPTIN [Concomitant]
     Active Substance: TRASTUZUMAB
     Route: 041
     Dates: start: 20150109, end: 20150515
  4. KADCYLA [Suspect]
     Active Substance: ADO-TRASTUZUMAB EMTANSINE
     Indication: BREAST CANCER
     Dosage: DOSAGE IS UNCERTAIN.
     Route: 041
     Dates: start: 20150619, end: 20150821
  5. XELODA [Suspect]
     Active Substance: CAPECITABINE
     Indication: BREAST CANCER
     Route: 048
     Dates: start: 20140613, end: 201410
  6. EXEMESTANE. [Concomitant]
     Active Substance: EXEMESTANE
     Indication: BREAST CANCER
     Route: 065
     Dates: start: 20141128
  7. MOHS PASTE [Concomitant]
     Indication: BREAST CANCER
     Route: 065
     Dates: start: 20141218
  8. XELODA [Suspect]
     Active Substance: CAPECITABINE
     Indication: BREAST CANCER
     Route: 048
     Dates: start: 201303, end: 201406
  9. PERJETA [Concomitant]
     Active Substance: PERTUZUMAB
     Indication: BREAST CANCER
     Dosage: FORM STRENGTH: 420 MG/14ML
     Route: 041
     Dates: start: 20140613
  10. KADCYLA [Suspect]
     Active Substance: ADO-TRASTUZUMAB EMTANSINE
     Dosage: DOSAGE IS UNCERTAIN.
     Route: 041
     Dates: start: 20150925, end: 20151023
  11. KADCYLA [Suspect]
     Active Substance: ADO-TRASTUZUMAB EMTANSINE
     Dosage: DOSAGE IS UNCERTAIN.
     Route: 041
     Dates: start: 20151211, end: 20151211

REACTIONS (5)
  - Pneumonia [Unknown]
  - Palmar-plantar erythrodysaesthesia syndrome [Not Recovered/Not Resolved]
  - Death [Fatal]
  - Pneumocystis jirovecii pneumonia [Unknown]
  - Platelet count decreased [Unknown]

NARRATIVE: CASE EVENT DATE: 201309
